FAERS Safety Report 8907940 (Version 2)
Quarter: 2012Q4

REPORT INFORMATION
  Report Type: Report from Study
  Country: NL (occurrence: NL)
  Receive Date: 20121114
  Receipt Date: 20121227
  Transmission Date: 20130627
  Serious: Yes (Hospitalization, Other)
  Sender: FDA-Public Use
  Company Number: NL-CELGENEUS-114-21880-12110027

PATIENT
  Age: 67 Year
  Sex: Male
  Weight: 83 kg

DRUGS (16)
  1. REVLIMID [Suspect]
     Indication: MULTIPLE MYELOMA
     Dosage: 25 Milligram
     Route: 048
     Dates: start: 20120316
  2. REVLIMID [Suspect]
     Dosage: 25 Milligram
     Route: 048
     Dates: end: 20120920
  3. REVLIMID [Suspect]
     Dosage: 25 Milligram
     Route: 048
     Dates: start: 20121026
  4. DEXAMETHASONE [Suspect]
     Indication: MULTIPLE MYELOMA
     Dosage: 5.7143 Milligram
     Route: 048
     Dates: start: 20120316
  5. DEXAMETHASONE [Suspect]
     Dosage: 5.7143 Milligram
     Route: 048
     Dates: end: 20120920
  6. DEXAMETHASONE [Suspect]
     Dosage: 5.7143 Milligram
     Route: 048
     Dates: start: 20121026
  7. OMEPRAZOLE [Concomitant]
     Indication: DRUG USE FOR UNKNOWN INDICATION
     Dosage: 20 Milligram
     Route: 048
  8. TAMSULOSIN [Concomitant]
     Indication: DRUG USE FOR UNKNOWN INDICATION
     Dosage: .4 Milligram
     Route: 048
  9. ATORVASTATIN [Concomitant]
     Indication: DRUG USE FOR UNKNOWN INDICATION
     Dosage: 40 Milligram
     Route: 048
  10. NEBIVOLOL [Concomitant]
     Indication: DRUG USE FOR UNKNOWN INDICATION
     Dosage: 5 Milligram
     Route: 048
  11. OXYNORM [Concomitant]
     Indication: DRUG USE FOR UNKNOWN INDICATION
     Dosage: 5 Milligram
     Route: 048
  12. APD [Concomitant]
     Indication: DRUG USE FOR UNKNOWN INDICATION
     Dosage: 3.2143 Milligram
     Route: 041
  13. CO-TRIMOXAZOLE [Concomitant]
     Indication: DRUG USE FOR UNKNOWN INDICATION
     Dosage: 400 Milligram
     Route: 048
  14. FRAGMIN [Concomitant]
     Indication: DRUG USE FOR UNKNOWN INDICATION
     Dosage: 10000
     Route: 058
  15. CLOPIDOGREL [Concomitant]
     Indication: DRUG USE FOR UNKNOWN INDICATION
     Route: 048
  16. TEMAZEPAM [Concomitant]
     Indication: DRUG USE FOR UNKNOWN INDICATION
     Dosage: 10 Milligram
     Route: 048

REACTIONS (2)
  - Aortic stenosis [Recovered/Resolved]
  - Atrial tachycardia [Recovered/Resolved]
